FAERS Safety Report 5813486-2 (Version None)
Quarter: 2008Q3

REPORT INFORMATION
  Report Type: 
  Country: None (occurrence: None)
  Receive Date: 20080717
  Receipt Date: 20080711
  Transmission Date: 20090109
  Serious: Yes (Hospitalization)
  Sender: FDA-Public Use
  Company Number: DE-WYE-G01708908

PATIENT
  Sex: Male
  Weight: 85 kg

DRUGS (1)
  1. TORISEL [Suspect]
     Indication: METASTATIC RENAL CELL CARCINOMA
     Route: 042
     Dates: start: 20080505, end: 20080526

REACTIONS (6)
  - ACIDOSIS [None]
  - ANAEMIA [None]
  - BRONCHOPNEUMONIA [None]
  - GENERAL PHYSICAL HEALTH DETERIORATION [None]
  - HYPONATRAEMIA [None]
  - URINARY TRACT INFECTION [None]
